FAERS Safety Report 12202110 (Version 6)
Quarter: 2016Q2

REPORT INFORMATION
  Report Type: Report from Study
  Country: US (occurrence: US)
  Receive Date: 20160322
  Receipt Date: 20160527
  Transmission Date: 20160815
  Serious: Yes (Hospitalization, Other)
  Sender: FDA-Public Use
  Company Number: US-AMGEN-USASL2016035166

PATIENT
  Age: 74 Year
  Sex: Female

DRUGS (2)
  1. ENBREL [Suspect]
     Active Substance: ETANERCEPT
     Dosage: UNK
     Route: 065
  2. ENBREL [Suspect]
     Active Substance: ETANERCEPT
     Indication: RHEUMATOID ARTHRITIS
     Dosage: 50 MG, WEEKLY
     Route: 065
     Dates: start: 20151224

REACTIONS (12)
  - Paraesthesia [Unknown]
  - Thrombosis [Unknown]
  - Infection [Unknown]
  - Joint swelling [Unknown]
  - Spinal operation [Unknown]
  - Intervertebral disc protrusion [Unknown]
  - Muscle strain [Unknown]
  - Incision site infection [Unknown]
  - Neuralgia [Not Recovered/Not Resolved]
  - Musculoskeletal pain [Unknown]
  - Nerve injury [Unknown]
  - Peripheral swelling [Unknown]

NARRATIVE: CASE EVENT DATE: 2016
